FAERS Safety Report 6296370-2 (Version None)
Quarter: 2009Q3

REPORT INFORMATION
  Report Type: 
  Country: None (occurrence: None)
  Receive Date: 20090804
  Receipt Date: 20090730
  Transmission Date: 20100115
  Serious: Yes (Death, Hospitalization, Other)
  Sender: FDA-Public Use
  Company Number: PHHY2009BR31547

PATIENT
  Sex: Female

DRUGS (8)
  1. EXELON [Suspect]
     Indication: DEMENTIA ALZHEIMER'S TYPE
     Dosage: 18MG/10CM2
     Route: 062
  2. EXELON [Suspect]
     Indication: DEMENTIA ALZHEIMER'S TYPE
  3. OLCADIL [Suspect]
  4. PANTOPRAZOLE SODIUM [Concomitant]
  5. ARADOIS [Concomitant]
  6. SERTRALINE [Concomitant]
     Dosage: 50 MG, UNK
  7. ATENOLOL [Concomitant]
     Dosage: 25 MG, UNK
  8. COUMADIN [Concomitant]
     Dosage: 5 MG, UNK

REACTIONS (18)
  - AGGRESSION [None]
  - ANGIOPLASTY [None]
  - CEREBROVASCULAR ACCIDENT [None]
  - CHEST PAIN [None]
  - DRUG INEFFECTIVE [None]
  - DYSARTHRIA [None]
  - FALL [None]
  - FEMUR FRACTURE [None]
  - HEMIPLEGIA [None]
  - HYPERTENSION [None]
  - ISCHAEMIC CARDIOMYOPATHY [None]
  - MYOCARDIAL INFARCTION [None]
  - NIGHTMARE [None]
  - PROSTHESIS IMPLANTATION [None]
  - SCREAMING [None]
  - SLEEP TALKING [None]
  - STENT PLACEMENT [None]
  - URINARY INCONTINENCE [None]
